FAERS Safety Report 20796404 (Version 1)
Quarter: 2022Q2

REPORT INFORMATION
  Report Type: Spontaneous
  Country: JP (occurrence: JP)
  Receive Date: 20220506
  Receipt Date: 20220506
  Transmission Date: 20220720
  Serious: Yes (Other)
  Sender: FDA-Public Use
  Company Number: JP-NOVARTISPH-NVSJ2021JP018968

PATIENT
  Age: 85 Year
  Sex: Female

DRUGS (13)
  1. SACUBITRIL\VALSARTAN [Suspect]
     Active Substance: SACUBITRIL\VALSARTAN
     Indication: Cardiac failure congestive
     Dosage: 100 MG
     Route: 048
     Dates: start: 20210416, end: 20210427
  2. SACUBITRIL\VALSARTAN [Suspect]
     Active Substance: SACUBITRIL\VALSARTAN
     Dosage: 200 MG
     Route: 048
     Dates: start: 20210430, end: 20210520
  3. SACUBITRIL\VALSARTAN [Suspect]
     Active Substance: SACUBITRIL\VALSARTAN
     Dosage: 400 MG
     Route: 048
     Dates: start: 20210521, end: 20210716
  4. SACUBITRIL\VALSARTAN [Suspect]
     Active Substance: SACUBITRIL\VALSARTAN
     Dosage: 200 MG
     Route: 048
     Dates: start: 20210717
  5. CARVEDILOL [Suspect]
     Active Substance: CARVEDILOL
     Indication: Cardiac failure congestive
     Dosage: 2.5 MG
     Route: 048
  6. CARVEDILOL [Suspect]
     Active Substance: CARVEDILOL
     Dosage: 5 MG
     Route: 048
  7. CARVEDILOL [Suspect]
     Active Substance: CARVEDILOL
     Dosage: 10 MG
     Route: 048
     Dates: start: 20210313, end: 20210412
  8. CARVEDILOL [Suspect]
     Active Substance: CARVEDILOL
     Dosage: 5 MG
     Route: 048
     Dates: start: 20210412
  9. FUROSEMIDE [Concomitant]
     Active Substance: FUROSEMIDE
     Indication: Cardiac failure congestive
     Dosage: 20 MG
     Route: 065
  10. FUROSEMIDE [Concomitant]
     Active Substance: FUROSEMIDE
     Dosage: 10 MG
     Route: 065
  11. FUROSEMIDE [Concomitant]
     Active Substance: FUROSEMIDE
     Dosage: 20 MG
     Route: 065
     Dates: start: 20210412
  12. FUROSEMIDE [Concomitant]
     Active Substance: FUROSEMIDE
     Dosage: 10 MG
     Route: 065
  13. SPIRONOLACTONE [Concomitant]
     Active Substance: SPIRONOLACTONE
     Indication: Product used for unknown indication
     Dosage: 25 MG
     Route: 048
     Dates: start: 20210313

REACTIONS (2)
  - Ejection fraction decreased [Recovered/Resolved]
  - Renal impairment [Recovered/Resolved]
